FAERS Safety Report 5827380-4 (Version None)
Quarter: 2008Q3

REPORT INFORMATION
  Report Type: 
  Country: None (occurrence: None)
  Receive Date: 20080730
  Receipt Date: 20080728
  Transmission Date: 20090109
  Serious: Yes (Hospitalization, Other)
  Sender: FDA-Public Use
  Company Number: US-BRISTOL-MYERS SQUIBB COMPANY-14278931

PATIENT
  Age: 78 Year
  Sex: Male

DRUGS (2)
  1. ACETAMINOPHEN [Suspect]
     Dosage: PARACETAMOL 500MG IMMEDIATE RELEASE TABLETS.
  2. ACETYLCYSTEINE [Suspect]
     Route: 042

REACTIONS (4)
  - HEPATOTOXICITY [None]
  - INTENTIONAL OVERDOSE [None]
  - RENAL IMPAIRMENT [None]
  - SUICIDE ATTEMPT [None]
